FAERS Safety Report 10142050 (Version 2)
Quarter: 2014Q2

REPORT INFORMATION
  Report Type: Spontaneous
  Country: IT (occurrence: IT)
  Receive Date: 20140429
  Receipt Date: 20140609
  Transmission Date: 20141212
  Serious: Yes (Hospitalization)
  Sender: FDA-Public Use
  Company Number: PHHY2014IT049720

PATIENT
  Age: 16 Year
  Sex: Female

DRUGS (2)
  1. ALPRAZOLAM [Suspect]
     Indication: DRUG ABUSE
     Dosage: 15 DF, ONCE/SINGLE
     Route: 048
     Dates: start: 20130708, end: 20130708
  2. SERTRALINE [Suspect]
     Indication: DRUG ABUSE
     Dosage: 15 DF, ONCE/SINGLE
     Route: 048
     Dates: start: 20130708, end: 20130708

REACTIONS (3)
  - Bradyphrenia [Unknown]
  - Tachycardia [Unknown]
  - Drug abuse [Unknown]
